FAERS Safety Report 17521865 (Version 1)
Quarter: 2020Q1

REPORT INFORMATION
  Report Type: Spontaneous
  Country: FR (occurrence: FR)
  Receive Date: 20200310
  Receipt Date: 20200310
  Transmission Date: 20200409
  Serious: Yes (Hospitalization)
  Sender: FDA-Public Use
  Company Number: FR-PFIZER INC-2020098965

PATIENT
  Age: 38 Year
  Sex: Female

DRUGS (3)
  1. SALAZOPYRINE [Suspect]
     Active Substance: SULFASALAZINE
     Indication: ANKYLOSING SPONDYLITIS
     Dosage: 4 DF, 1X/DAY
     Route: 048
     Dates: start: 201910, end: 20200202
  2. SALAZOPYRINE [Suspect]
     Active Substance: SULFASALAZINE
     Indication: ANKYLOSING SPONDYLITIS
     Dosage: 4 DF, 1X/DAY
     Route: 048
     Dates: start: 20200205, end: 20200207
  3. SALAZOPYRINE [Suspect]
     Active Substance: SULFASALAZINE
     Dosage: 2 DF, 1X/DAY
     Route: 048
     Dates: start: 20200204, end: 20200205

REACTIONS (6)
  - Pyrexia [Not Recovered/Not Resolved]
  - Lymphadenopathy [Not Recovered/Not Resolved]
  - Face oedema [Not Recovered/Not Resolved]
  - Dermatitis exfoliative generalised [Not Recovered/Not Resolved]
  - Liver injury [Not Recovered/Not Resolved]
  - Drug reaction with eosinophilia and systemic symptoms [Not Recovered/Not Resolved]

NARRATIVE: CASE EVENT DATE: 20200127
